FAERS Safety Report 25870794 (Version 3)
Quarter: 2025Q4

REPORT INFORMATION
  Report Type: Report from Study
  Country: EU (occurrence: EU)
  Receive Date: 20251001
  Receipt Date: 20251013
  Transmission Date: 20260117
  Serious: No
  Sender: ABBVIE
  Company Number: EU-ABBVIE-6481844

PATIENT
  Age: 78 Year
  Sex: Female
  Weight: 60 kg

DRUGS (12)
  1. FOSCARBIDOPA\FOSLEVODOPA [Suspect]
     Active Substance: FOSCARBIDOPA\FOSLEVODOPA
     Indication: Parkinson^s disease
     Dosage: DURATION OF THE DAILY INFUSION 24 HOURS, FLOW RATE: 0.44 ML/H, DAILY DOSE OF FOSLEVODOPA/FOSCARBI...
     Route: 058
     Dates: start: 20250318
  2. FOSCARBIDOPA\FOSLEVODOPA [Suspect]
     Active Substance: FOSCARBIDOPA\FOSLEVODOPA
     Dosage: DURATION OF THE DAILY INFUSION: 24 HOURS, LOADING DOSE:0.10, BASIC FLOW 0.54 ML/H, IN MORNING, AF...
     Route: 058
     Dates: start: 20250423, end: 20250725
  3. FOSCARBIDOPA\FOSLEVODOPA [Suspect]
     Active Substance: FOSCARBIDOPA\FOSLEVODOPA
     Dosage: DURATION OF THE DAILY INFUSION: 24 HOURS, FLOW RATE: 0.54 ML/H, DAILY DOSE OF FOSLEVODOPA/FOSCARB...
     Route: 058
     Dates: start: 20250319, end: 20250423
  4. FOSCARBIDOPA\FOSLEVODOPA [Suspect]
     Active Substance: FOSCARBIDOPA\FOSLEVODOPA
     Dosage: DURATION OF THE DAILY INFUSION: 24 HOURS, BASIC FLOW 0.52 ML/H DURATION 4 HOURS IN AFTERNOON, LOW...
     Route: 058
     Dates: start: 20250725, end: 20250910
  5. FOSCARBIDOPA\FOSLEVODOPA [Suspect]
     Active Substance: FOSCARBIDOPA\FOSLEVODOPA
     Dosage: DURATION OF THE DAILY INFUSION: 24 HOURS, BASIC FLOW 0.52 ML/H DURATION 4 HOURS IN AFTERNOON, LOW...
     Route: 058
     Dates: start: 20250910, end: 20250925
  6. FOSCARBIDOPA\FOSLEVODOPA [Suspect]
     Active Substance: FOSCARBIDOPA\FOSLEVODOPA
     Dosage: DURATION OF THE DAILY INFUSION: 24 HOURS?BASIC FLOW 0.52 ML/H DURATION 13.0 HOURS IN MORNING AND ...
     Route: 058
     Dates: start: 20250925
  7. APOMORPHINE [Concomitant]
     Active Substance: APOMORPHINE
     Indication: Parkinson^s disease
     Dosage: DAILY DOSE: 26 MG/H
     Dates: start: 20250318
  8. VITAMIN D [Concomitant]
     Active Substance: VITAMIN D NOS
     Indication: Product used for unknown indication
  9. IBUPROFEN [Concomitant]
     Active Substance: IBUPROFEN
     Indication: Product used for unknown indication
     Dosage: PUNCTURE ?POINT
  10. PRAMIPEXOLE [Concomitant]
     Active Substance: PRAMIPEXOLE
     Indication: Parkinson^s disease
     Dosage: 2CP IN THE MORNING
     Dates: start: 20120515
  11. CLOZAPINE [Concomitant]
     Active Substance: CLOZAPINE
     Indication: Parkinson^s disease
     Dosage: IN THE EVENING
     Dates: start: 20250922
  12. BENZYL BENZOATE [Concomitant]
     Active Substance: BENZYL BENZOATE
     Indication: Product used for unknown indication

REACTIONS (1)
  - Dizziness postural [Recovered/Resolved]

NARRATIVE: CASE EVENT DATE: 20250924
